FAERS Safety Report 24985603 (Version 2)
Quarter: 2025Q1

REPORT INFORMATION
  Report Type: Report from Study
  Country: US (occurrence: US)
  Receive Date: 20250219
  Receipt Date: 20250304
  Transmission Date: 20250409
  Serious: Yes (Other)
  Sender: SUNOVION
  Company Number: US-SMPA-2025SPA001646

PATIENT

DRUGS (1)
  1. ORGOVYX [Suspect]
     Active Substance: RELUGOLIX
     Indication: Prostate cancer
     Dosage: 120 MG, QD
     Route: 048
     Dates: start: 20240801

REACTIONS (6)
  - Glaucoma [Unknown]
  - Muscle disorder [Unknown]
  - Tendon disorder [Unknown]
  - Arthropathy [Unknown]
  - Asthenia [Unknown]
  - Hot flush [Unknown]
